FAERS Safety Report 24258306 (Version 1)
Quarter: 2024Q3

REPORT INFORMATION
  Report Type: Spontaneous
  Country: SE (occurrence: SE)
  Receive Date: 20240828
  Receipt Date: 20240828
  Transmission Date: 20241017
  Serious: Yes (Other)
  Sender: TEVA
  Company Number: SE-TEVA-VS-3237119

PATIENT
  Sex: Female

DRUGS (1)
  1. COPAXONE [Suspect]
     Active Substance: GLATIRAMER ACETATE
     Indication: Product used for unknown indication
     Dosage: DOSAGE: 20 MG/ML
     Route: 065

REACTIONS (3)
  - Near death experience [Unknown]
  - Palpitations [Unknown]
  - Dyspnoea [Unknown]
